FAERS Safety Report 5797688-X (Version None)
Quarter: 2008Q2

REPORT INFORMATION
  Report Type: 
  Country: None (occurrence: None)
  Receive Date: 20080618
  Receipt Date: 20070518
  Transmission Date: 20081010
  Serious: Yes (Other)
  Sender: FDA-Public Use
  Company Number: 200713727US

PATIENT
  Age: 45 Year
  Sex: Female

DRUGS (4)
  1. LANTUS [Suspect]
     Indication: TYPE 2 DIABETES MELLITUS
     Dosage: 40 U HS
  2. OPTICLIK [Suspect]
     Indication: TYPE 2 DIABETES MELLITUS
  3. INSULIN (HUMALOG METFORMIN) [Concomitant]
  4. ALTACE [Concomitant]

REACTIONS (2)
  - BLOOD GLUCOSE INCREASED [None]
  - HYPERGLYCAEMIA [None]
